FAERS Safety Report 10242183 (Version 1)
Quarter: 2014Q2

REPORT INFORMATION
  Report Type: Spontaneous
  Country: GB (occurrence: GB)
  Receive Date: 20140617
  Receipt Date: 20140617
  Transmission Date: 20141212
  Serious: Yes (Other)
  Sender: FDA-Public Use
  Company Number: GB-PFIZER INC-2014152765

PATIENT
  Age: 77 Year
  Sex: Female
  Weight: 48 kg

DRUGS (4)
  1. AMLODIPINE BESILATE [Suspect]
     Dosage: UNK
     Dates: start: 20140430
  2. ASPIRIN [Concomitant]
     Dates: start: 20140128
  3. RAMIPRIL [Concomitant]
     Dates: start: 20140128
  4. SIMVASTATIN [Concomitant]
     Dates: start: 20140128

REACTIONS (1)
  - Headache [Recovering/Resolving]
